FAERS Safety Report 4449492-2 (Version None)
Quarter: 2004Q3

REPORT INFORMATION
  Report Type: 
  Country: None (occurrence: None)
  Receive Date: 20040903
  Receipt Date: 20040909
  Transmission Date: 20050211
  Serious: Yes (Hospitalization)
  Sender: FDA-Public Use
  Company Number: TCI2002A02762

PATIENT
  Age: 59 Year
  Sex: Male

DRUGS (15)
  1. LANSOPRAZOLE (LANSOPRAZOLE) (CAPSULES) [Suspect]
     Indication: REFLUX OESOPHAGITIS
     Dosage: SEE IMAGE
     Route: 048
     Dates: start: 20020531, end: 20021114
  2. LANSOPRAZOLE (LANSOPRAZOLE) (CAPSULES) [Suspect]
     Indication: REFLUX OESOPHAGITIS
     Dosage: SEE IMAGE
     Route: 048
     Dates: start: 20021115, end: 20030525
  3. SOLITA-T3 INJECTION (SOLITA-T3 INJECTION) (INJECTION) [Concomitant]
  4. ALANAMIN-F INJ. (FURSULTIAMINE) (INJECTION) [Concomitant]
  5. NYCLIN (NICOTINIC ACID) (INJECTION) [Concomitant]
  6. ADETPHOS L (ADENOSINE TRIPHOSPHATE, DISODIUM SALT) (INJECTION) [Concomitant]
  7. METHYCOBAL (MECOBALAMIN) (TABLETS) [Concomitant]
  8. SELBEX (TEPRENONE) (CAPSULES) [Concomitant]
  9. ADEPHOS (ADENOSINE TRIPHOSPHATE, DISODIUM SALT) (GRANULATE) [Concomitant]
  10. CARNACULIN (KALLIDINOGENASE) (PANCREAS EXTRACT) (PREPARATION FOR ORAL [Concomitant]
  11. FAROM (FAROPENEM SODIUM) (TABLETS) [Concomitant]
  12. FLOMOX (CEFCAPENE PIVOXIL HYDROCHLORIDE) (TABLETS) [Concomitant]
  13. LOXONIN (LOXOPROFEN SODIUM) (TABLETS) [Concomitant]
  14. AMOBAN (ZOPICLONE) (TABLETS) [Concomitant]
  15. LAXOBERON (SODIUM PICOSULFATE) (SOLUTION) [Concomitant]

REACTIONS (1)
  - FACIAL PALSY [None]
